FAERS Safety Report 4433099-7 (Version None)
Quarter: 2004Q3

REPORT INFORMATION
  Report Type: 
  Country: None (occurrence: None)
  Receive Date: 20040823
  Receipt Date: 20040812
  Transmission Date: 20050211
  Serious: Yes (Hospitalization, Other)
  Sender: FDA-Public Use
  Company Number: 04-309-0092

PATIENT
  Age: 43 Year
  Sex: Male

DRUGS (1)
  1. DOXORUBICIN HCL [Suspect]
     Indication: HEPATIC NEOPLASM MALIGNANT
     Dosage: 60 MG/M^2 EVERY 3WK
     Dates: start: 20040503, end: 20040705

REACTIONS (3)
  - ALANINE AMINOTRANSFERASE INCREASED [None]
  - HEPATIC NEOPLASM MALIGNANT [None]
  - MALIGNANT NEOPLASM PROGRESSION [None]
